FAERS Safety Report 4460983-0 (Version None)
Quarter: 2004Q3

REPORT INFORMATION
  Report Type: 
  Country: None (occurrence: None)
  Receive Date: 20040928
  Receipt Date: 20040618
  Transmission Date: 20050211
  Serious: No
  Sender: FDA-Public Use
  Company Number: US-GLAXOSMITHKLINE-A0515554A

PATIENT
  Age: 48 Year
  Sex: Female

DRUGS (2)
  1. ADVAIR DISKUS 100/50 [Suspect]
     Indication: ASTHMA
     Route: 055
  2. SEREVENT [Suspect]
     Indication: ASTHMA
     Route: 055

REACTIONS (7)
  - COUGH [None]
  - THERAPEUTIC RESPONSE DECREASED [None]
  - THROAT IRRITATION [None]
  - UPPER RESPIRATORY TRACT INFECTION [None]
  - VOCAL CORD DISORDER [None]
  - VOMITING [None]
  - WEIGHT INCREASED [None]
